FAERS Safety Report 9213092 (Version 2)
Quarter: 2013Q2

REPORT INFORMATION
  Report Type: Spontaneous
  Country: US (occurrence: US)
  Receive Date: 20130405
  Receipt Date: 20130430
  Transmission Date: 20140414
  Serious: No
  Sender: FDA-Public Use
  Company Number: US-PFIZER INC-2013104616

PATIENT
  Age: 61 Year
  Sex: Male
  Weight: 118 kg

DRUGS (2)
  1. VIAGRA [Suspect]
     Indication: ERECTILE DYSFUNCTION
     Dosage: 100 MG, AS NEEDED
     Route: 048
     Dates: start: 2011, end: 201302
  2. LANTUS [Concomitant]
     Indication: DIABETES MELLITUS
     Dosage: UNK, 1X/DAY

REACTIONS (2)
  - Paranasal sinus hypersecretion [Unknown]
  - Nasopharyngitis [Unknown]
